FAERS Safety Report 7547300-4 (Version None)
Quarter: 2011Q2

REPORT INFORMATION
  Report Type: 
  Country: None (occurrence: None)
  Receive Date: 20110614
  Receipt Date: 20090223
  Transmission Date: 20111010
  Serious: Yes (Other)
  Sender: FDA-Public Use
  Company Number: US-BAYER-2011-007148

PATIENT
  Age: 74 Year
  Sex: Male
  Weight: 103 kg

DRUGS (8)
  1. NORVASC [Concomitant]
     Dosage: 10 MG/ONCE A DAY.
  2. METFORMIN HCL [Concomitant]
     Dosage: 1000MG/ TWICE A DAY
  3. HYDROCHLOROTHIAZIDE [Concomitant]
     Dosage: 25 MG/ONCE A DAY
  4. LISINOPRIL [Concomitant]
     Dosage: 20 MG/ TWICE A DAY.
  5. RED BLOOD CELLS [Concomitant]
     Dosage: 2 UNITS
  6. TRASYLOL [Suspect]
     Dosage: INITIAL (TEST) DOSE OF 1ML
     Route: 042
     Dates: start: 20031117, end: 20031117
  7. TRASYLOL [Suspect]
     Indication: CORONARY ARTERY BYPASS
     Dosage: LOADING DOSE OF 200ML THEN 50 CC/HOUR
     Route: 042
     Dates: start: 20031117, end: 20031117
  8. LIPITOR [Concomitant]
     Dosage: 10MG/ ONCE A DAY

REACTIONS (10)
  - MULTI-ORGAN FAILURE [None]
  - RENAL INJURY [None]
  - PAIN [None]
  - EMOTIONAL DISTRESS [None]
  - STRESS [None]
  - ANXIETY [None]
  - FEAR [None]
  - RENAL FAILURE [None]
  - RENAL IMPAIRMENT [None]
  - UNEVALUABLE EVENT [None]
